FAERS Safety Report 7103907-X (Version None)
Quarter: 2010Q4

REPORT INFORMATION
  Report Type: 
  Country: None (occurrence: None)
  Receive Date: 20101115
  Receipt Date: 20101109
  Transmission Date: 20110411
  Serious: Yes (Other)
  Sender: FDA-Public Use
  Company Number: IT-PFIZER INC-2010143562

PATIENT
  Age: 20 Month
  Sex: Male

DRUGS (3)
  1. RAPAMUNE [Suspect]
     Indication: ANAEMIA HAEMOLYTIC AUTOIMMUNE
  2. CYCLOSPORINE [Concomitant]
     Indication: ANAEMIA HAEMOLYTIC AUTOIMMUNE
     Dosage: UNK
     Dates: end: 20101106
  3. CORTISONE [Concomitant]
     Indication: ANAEMIA HAEMOLYTIC AUTOIMMUNE
     Dosage: UNK
     Dates: end: 20101106

REACTIONS (4)
  - DRUG ADMINISTRATION ERROR [None]
  - OFF LABEL USE [None]
  - SOMNOLENCE [None]
  - VOMITING [None]
